FAERS Safety Report 20146554 (Version 2)
Quarter: 2021Q4

REPORT INFORMATION
  Report Type: Report from Study
  Country: US (occurrence: US)
  Receive Date: 20211203
  Receipt Date: 20211206
  Transmission Date: 20220303
  Serious: Yes (Hospitalization, Other)
  Sender: FDA-Public Use
  Company Number: US-BAYER-2021-208906

PATIENT
  Age: 86 Year
  Sex: Male
  Weight: 97.324 kg

DRUGS (4)
  1. ADEMPAS [Suspect]
     Active Substance: RIOCIGUAT
     Indication: Pulmonary arterial hypertension
     Dosage: UNK
     Dates: start: 20200523
  2. ADEMPAS [Suspect]
     Active Substance: RIOCIGUAT
     Indication: Pulmonary arterial hypertension
     Dosage: 2.5 MG, TID
     Route: 048
  3. ADEMPAS [Suspect]
     Active Substance: RIOCIGUAT
     Indication: Pulmonary arterial hypertension
     Dosage: 2.5 MG, TID
     Route: 048
  4. XARELTO [Concomitant]
     Active Substance: RIVAROXABAN

REACTIONS (5)
  - Prostatic urethral lift procedure [Unknown]
  - Rib fracture [None]
  - Fall [None]
  - Pain [None]
  - Constipation [None]

NARRATIVE: CASE EVENT DATE: 20211111
